FAERS Safety Report 8929968 (Version 1)
Quarter: 2012Q4

REPORT INFORMATION
  Report Type: 
  Country: US (occurrence: US)
  Receive Date: 20121128
  Receipt Date: 20121128
  Transmission Date: 20130627
  Serious: No
  Sender: FDA-Public Use
  Company Number: US-ASTRAZENECA-2012SE85259

PATIENT
  Age: 65 Year
  Sex: Female
  Weight: 73.9 kg

DRUGS (7)
  1. NEXIUM EERD [Suspect]
     Indication: GASTROOESOPHAGEAL REFLUX DISEASE
     Route: 048
     Dates: start: 2007
  2. NEXIUM EERD [Suspect]
     Indication: GASTROOESOPHAGEAL REFLUX DISEASE
     Route: 048
  3. FISH OIL [Concomitant]
  4. MVI [Concomitant]
  5. CALCIUM PLUS D [Concomitant]
  6. VENTOLIN [Concomitant]
     Indication: COUGH
     Dosage: PRN
     Route: 055
     Dates: start: 2011
  7. ALBUTEROL [Concomitant]
     Indication: COUGH
     Dosage: PRN
     Route: 055
     Dates: start: 2011

REACTIONS (5)
  - Osteoporosis [Unknown]
  - Body height decreased [Unknown]
  - Facial pain [Unknown]
  - Resorption bone increased [Unknown]
  - Off label use [Unknown]
